FAERS Safety Report 6918050-X (Version None)
Quarter: 2010Q3

REPORT INFORMATION
  Report Type: 
  Country: None (occurrence: None)
  Receive Date: 20100810
  Receipt Date: 20091214
  Transmission Date: 20110219
  Serious: No
  Sender: FDA-Public Use
  Company Number: US-PFIZER INC-2009245294

PATIENT
  Age: 74 Year
  Sex: Female

DRUGS (5)
  1. TOVIAZ [Suspect]
     Dosage: 4 MG, UNK
     Dates: start: 20090701
  2. DETROL LA [Suspect]
     Dosage: 4 MG, UNK
     Dates: start: 20070301
  3. OXYBUTYNIN [Suspect]
     Dosage: 3.8 MG, UNK
     Dates: start: 20090601
  4. VESICARE [Suspect]
     Dosage: 10 MG, UNK
     Dates: start: 20080301
  5. TROSPIUM CHLORIDE [Suspect]
     Dosage: 60 MG, UNK
     Dates: start: 20090701

REACTIONS (5)
  - BURNING SENSATION [None]
  - DRUG INEFFECTIVE [None]
  - PRURITUS [None]
  - RASH [None]
  - STRESS [None]
